FAERS Safety Report 6425350-9 (Version None)
Quarter: 2009Q4

REPORT INFORMATION
  Report Type: 
  Country: None (occurrence: None)
  Receive Date: 20091103
  Receipt Date: 20091027
  Transmission Date: 20100525
  Serious: Yes (Hospitalization)
  Sender: FDA-Public Use
  Company Number: A0813871A

PATIENT
  Sex: Male
  Weight: 48.1 kg

DRUGS (5)
  1. ABACAVIR [Suspect]
     Indication: HIV INFECTION
     Dosage: 175MG TWICE PER DAY
     Dates: start: 20090922
  2. MARAVIROC [Suspect]
     Indication: HIV INFECTION
     Dosage: 75MG TWICE PER DAY
     Route: 048
     Dates: start: 20090922
  3. EMTRICITABINE [Suspect]
     Indication: HIV INFECTION
     Dosage: 130MG PER DAY
     Dates: start: 20090922
  4. DARUNAVIR [Suspect]
     Indication: HIV INFECTION
     Dosage: 375MG TWICE PER DAY
     Dates: start: 20090922
  5. RITONAVIR [Suspect]
     Indication: HIV INFECTION
     Dosage: 50MG TWICE PER DAY
     Dates: start: 20090922

REACTIONS (1)
  - PRURIGO [None]
